FAERS Safety Report 9543689 (Version 1)
Quarter: 2013Q2

REPORT INFORMATION
  Report Type: Spontaneous
  Country: US (occurrence: None)
  Receive Date: 20130524
  Receipt Date: 20130524
  Transmission Date: 20140414
  Serious: Yes (Other)
  Sender: FDA-Public Use
  Company Number: PHEH2012US024906

PATIENT
  Age: 47 Year
  Sex: Female
  Weight: 92.1 kg

DRUGS (9)
  1. GILENYA (FINGOLIMOD) CAPSULE, 0.5 MG [Suspect]
     Indication: MULTIPLE SCLEROSIS
     Dosage: 0.5 MG, QD, ORAL
     Route: 048
     Dates: start: 20120529
  2. MIRAPEX (PRAMIPEXOLE DIHYDROCHLORIDE) [Concomitant]
  3. ZOLOFT (SERTRALINE HYDROCHLORIDE) [Concomitant]
  4. VITAMIN D (ERGOCALCIFEROL) [Concomitant]
  5. FISH OIL (FISH OIL) [Concomitant]
  6. MULTIVITAMINS (ASCORBIC ACID, ERGOCALCIFEROL, FOLIC ACID, NICOTINAMIDE, OANTHENOL, RETINOL, RIBOFLAVIN, THIAMINE HYDROCHLORIDE) [Concomitant]
  7. LYRICA (PREGABALIN) [Concomitant]
  8. MAGNESIUM (MAGNESIUM) [Concomitant]
  9. ZINC (ZINC) [Concomitant]

REACTIONS (2)
  - Weight decreased [None]
  - Insomnia [None]
